FAERS Safety Report 8162498-5 (Version None)
Quarter: 2012Q1

REPORT INFORMATION
  Report Type: 
  Country: None (occurrence: None)
  Receive Date: 20120224
  Receipt Date: 20120224
  Transmission Date: 20120608
  Serious: No
  Sender: FDA-Public Use
  Company Number: None

PATIENT
  Age: 39 Year
  Sex: Female
  Weight: 47.627 kg

DRUGS (1)
  1. LEVAQUIN [Suspect]
     Indication: SINUSITIS
     Dosage: 500MG
     Route: 048

REACTIONS (22)
  - DECREASED ACTIVITY [None]
  - BACK PAIN [None]
  - RASH [None]
  - MULTIPLE CHEMICAL SENSITIVITY [None]
  - LIGAMENT DISORDER [None]
  - DIZZINESS [None]
  - NERVOUS SYSTEM DISORDER [None]
  - PAIN [None]
  - TENDON DISORDER [None]
  - NAUSEA [None]
  - URTICARIA [None]
  - MYALGIA [None]
  - MITOCHONDRIAL CYTOPATHY [None]
  - BACK DISORDER [None]
  - ARTHRALGIA [None]
  - POISONING [None]
  - ARTHROPATHY [None]
  - FATIGUE [None]
  - ABASIA [None]
  - MUSCULOSKELETAL DISORDER [None]
  - NEURALGIA [None]
  - IMPAIRED HEALING [None]
